FAERS Safety Report 10207542 (Version 1)
Quarter: 2014Q2

REPORT INFORMATION
  Report Type: Spontaneous
  Country: US (occurrence: US)
  Receive Date: 20140530
  Receipt Date: 20140530
  Transmission Date: 20141212
  Serious: No
  Sender: FDA-Public Use
  Company Number: US-GLAXOSMITHKLINE-A1048720A

PATIENT
  Sex: Male

DRUGS (2)
  1. VENTOLIN HFA [Suspect]
     Indication: ASTHMA
     Dosage: 2PUFF FIVE TIMES PER DAY
     Route: 055
     Dates: start: 2013
  2. ALBUTEROL [Concomitant]
     Route: 055

REACTIONS (4)
  - Drug ineffective [Unknown]
  - Asthma [Unknown]
  - Dyspnoea [Unknown]
  - Drug administration error [Unknown]
